FAERS Safety Report 10006754 (Version 1)
Quarter: 2014Q1

REPORT INFORMATION
  Report Type: Spontaneous
  Country: US (occurrence: None)
  Receive Date: 20140312
  Receipt Date: 20140312
  Transmission Date: 20141002
  Serious: Yes (Other)
  Sender: FDA-Public Use
  Company Number: None

PATIENT
  Age: 55 Year
  Sex: Female
  Weight: 84.37 kg

DRUGS (10)
  1. RABEPRAZOLE [Suspect]
     Indication: GASTROOESOPHAGEAL REFLUX DISEASE
     Route: 048
     Dates: start: 20131214, end: 20140114
  2. ACIPHEX [Concomitant]
  3. REGULOID [Concomitant]
  4. FIBER [Concomitant]
  5. LYRICA [Concomitant]
  6. ALBUTEROL [Concomitant]
  7. ZANAFLEX [Concomitant]
  8. VIVELLE [Concomitant]
  9. ALLEGRA [Concomitant]
  10. FIBER [Concomitant]

REACTIONS (2)
  - Malaise [None]
  - Product substitution issue [None]
